FAERS Safety Report 18392412 (Version 1)
Quarter: 2020Q4

REPORT INFORMATION
  Report Type: Spontaneous
  Country: IT (occurrence: IT)
  Receive Date: 20201016
  Receipt Date: 20201016
  Transmission Date: 20210114
  Serious: Yes (Other)
  Sender: FDA-Public Use
  Company Number: IT-PIERREL PHARMA S.P.A.-2020PIR00027

PATIENT
  Age: 38 Year
  Sex: Male

DRUGS (1)
  1. ARTICAINE 4% WITH ADRENALINE 1:100,000 [Suspect]
     Active Substance: ARTICAINE\EPINEPHRINE
     Dosage: UNK

REACTIONS (1)
  - Osteonecrosis [Unknown]
